FAERS Safety Report 21265831 (Version 1)
Quarter: 2022Q3

REPORT INFORMATION
  Report Type: Spontaneous
  Country: US (occurrence: US)
  Receive Date: 20220829
  Receipt Date: 20220829
  Transmission Date: 20221026
  Serious: No
  Sender: FDA-Public Use
  Company Number: US-GSK-US2022AMR121240

PATIENT
  Sex: Female

DRUGS (3)
  1. ADVAIR HFA [Suspect]
     Active Substance: FLUTICASONE PROPIONATE\SALMETEROL XINAFOATE
     Indication: Asthma
     Dosage: UNK, 1-2 PUFFS
  2. DUPIXENT [Concomitant]
     Active Substance: DUPILUMAB
     Indication: Asthma
     Dosage: 400 MG, QD
     Route: 058
  3. DUPIXENT [Concomitant]
     Active Substance: DUPILUMAB
     Dosage: 200 MG, MAINTENANCE THERAPY EVERY OTHER WEEK
     Route: 058

REACTIONS (1)
  - Therapeutic response decreased [Unknown]
